FAERS Safety Report 5141876-2 (Version None)
Quarter: 2006Q4

REPORT INFORMATION
  Report Type: 
  Country: None (occurrence: None)
  Receive Date: 20061027
  Receipt Date: 20061014
  Transmission Date: 20070319
  Serious: Yes (Hospitalization, Other)
  Sender: FDA-Public Use
  Company Number: S06-UKI-04238-01

PATIENT
  Age: 42 Year
  Sex: Female

DRUGS (4)
  1. CITALOPRAM HYDROBROMIDE [Suspect]
     Indication: BIPOLAR DISORDER
     Dosage: 40 MG QD PO
     Route: 048
  2. QUETIAPINE FUMARATE [Suspect]
     Indication: BIPOLAR DISORDER
     Dosage: 800 MG
  3. QUETIAPINE FUMARATE [Suspect]
     Indication: BIPOLAR DISORDER
     Dosage: 1000 MG ONCE PO
     Route: 048
  4. ALPRAZOLAM [Concomitant]

REACTIONS (12)
  - AGITATION [None]
  - BLOOD CREATINE PHOSPHOKINASE INCREASED [None]
  - DEHYDRATION [None]
  - DELIRIUM [None]
  - DRUG INTERACTION [None]
  - HEADACHE [None]
  - HYPERREFLEXIA [None]
  - MUSCLE RIGIDITY [None]
  - OVERDOSE [None]
  - SENSORY DISTURBANCE [None]
  - SEROTONIN SYNDROME [None]
  - URINARY INCONTINENCE [None]
